FAERS Safety Report 9472526 (Version 2)
Quarter: 2013Q4

REPORT INFORMATION
  Report Type: Spontaneous
  Country: FR (occurrence: FR)
  Receive Date: 20130823
  Receipt Date: 20131018
  Transmission Date: 20140711
  Serious: Yes (Hospitalization, Other)
  Sender: FDA-Public Use
  Company Number: FR-PFIZER INC-2013239654

PATIENT
  Age: 22 Year
  Sex: Female

DRUGS (5)
  1. CYTOTEC [Suspect]
     Indication: LABOUR INDUCTION
     Dosage: 0.25 DF, 1X/DAY
     Route: 067
     Dates: start: 20120603, end: 20120603
  2. CYTOTEC [Suspect]
     Dosage: 0.25 DF, 1X/DAY
     Route: 048
     Dates: start: 20120603, end: 20120603
  3. CYTOTEC [Suspect]
     Dosage: 2 DF, 1X/DAY (POST PARTUM)
     Route: 054
     Dates: start: 20120603, end: 20120603
  4. DALACINE [Concomitant]
     Dosage: UNK
     Route: 042
     Dates: start: 20120603, end: 20120603
  5. SYNTOCINON [Concomitant]
     Indication: LABOUR INDUCTION
     Dosage: UNK
     Dates: start: 20120603, end: 20120603

REACTIONS (6)
  - Off label use [Recovered/Resolved]
  - Vomiting [Recovered/Resolved]
  - Uterine hypertonus [Recovered/Resolved]
  - Postpartum haemorrhage [Recovered/Resolved]
  - Umbilical cord prolapse [Unknown]
  - Hypotension [Unknown]
